FAERS Safety Report 15676988 (Version 1)
Quarter: 2018Q4

REPORT INFORMATION
  Report Type: Spontaneous
  Country: NL (occurrence: NL)
  Receive Date: 20181130
  Receipt Date: 20181130
  Transmission Date: 20190205
  Serious: Yes (Hospitalization)
  Sender: FDA-Public Use
  Company Number: NL-TEVA-2018-NL-983550

PATIENT
  Age: 44 Year
  Sex: Male
  Weight: 75 kg

DRUGS (1)
  1. OLANZAPINE TABLET, 5 MG (MILLIGRAM) [Suspect]
     Active Substance: OLANZAPINE
     Indication: ANXIETY
     Route: 065
     Dates: start: 20070101

REACTIONS (4)
  - Gynaecomastia [Recovered/Resolved with Sequelae]
  - Insomnia [Not Recovered/Not Resolved]
  - Withdrawal syndrome [Recovered/Resolved with Sequelae]
  - Polyuria [Recovered/Resolved with Sequelae]

NARRATIVE: CASE EVENT DATE: 20100101
